FAERS Safety Report 24088724 (Version 1)
Quarter: 2024Q3

REPORT INFORMATION
  Report Type: Spontaneous
  Country: US (occurrence: US)
  Receive Date: 20240715
  Receipt Date: 20240715
  Transmission Date: 20241017
  Serious: Yes (Hospitalization)
  Sender: LEO PHARM
  Company Number: US-LEO Pharma-371855

PATIENT
  Age: 46 Year
  Sex: Male
  Weight: 98 kg

DRUGS (4)
  1. ADBRY [Suspect]
     Active Substance: TRALOKINUMAB-LDRM
     Indication: Neurodermatitis
     Dosage: 600 MG (4 SYRINGES) SUBCUTANEOUSLY ON DAY 1
     Route: 058
     Dates: start: 202406
  2. ADBRY [Suspect]
     Active Substance: TRALOKINUMAB-LDRM
     Indication: Neurodermatitis
     Dosage: 300 MG (2 SYRINGES) EVERY TWO WEEKS
     Route: 058
  3. ADBRY [Suspect]
     Active Substance: TRALOKINUMAB-LDRM
     Indication: Dermatitis atopic
     Dosage: 600 MG (4 SYRINGES) SUBCUTANEOUSLY ON DAY 1
     Route: 058
     Dates: start: 202406
  4. ADBRY [Suspect]
     Active Substance: TRALOKINUMAB-LDRM
     Indication: Dermatitis atopic
     Dosage: 300 MG (2 SYRINGES) EVERY TWO WEEKS
     Route: 058

REACTIONS (2)
  - Off label use [Unknown]
  - Arthritis infective [Unknown]
